FAERS Safety Report 10830220 (Version 1)
Quarter: 2015Q1

REPORT INFORMATION
  Report Type: Report from Study
  Country: US (occurrence: US)
  Receive Date: 20150219
  Receipt Date: 20150219
  Transmission Date: 20150721
  Serious: No
  Sender: FDA-Public Use
  Company Number: US-ABBVIE-14P-163-1187644-00

PATIENT

DRUGS (1)
  1. HUMIRA [Suspect]
     Active Substance: ADALIMUMAB
     Indication: PSORIASIS

REACTIONS (9)
  - Eye swelling [Unknown]
  - Psoriasis [Unknown]
  - Skin exfoliation [Unknown]
  - Rubber sensitivity [Unknown]
  - Pruritus [Unknown]
  - Rash papular [Unknown]
  - Swelling face [Unknown]
  - Pruritus [Not Recovered/Not Resolved]
  - Rash [Unknown]
